FAERS Safety Report 26153281 (Version 1)
Quarter: 2025Q4

REPORT INFORMATION
  Report Type: Spontaneous
  Country: EU (occurrence: EU)
  Receive Date: 20251214
  Receipt Date: 20251214
  Transmission Date: 20260117
  Serious: Yes (Hospitalization)
  Sender: MYLAN
  Company Number: None

PATIENT
  Age: 54 Year
  Sex: Male

DRUGS (2)
  1. XANAX [Suspect]
     Active Substance: ALPRAZOLAM
     Indication: Product used for unknown indication
     Dosage: 20 MILLILITER (ORAL DROPS, SOLUTION)
     Route: 061
     Dates: start: 20251121, end: 20251121
  2. TRAMADOL HYDROCHLORIDE [Suspect]
     Active Substance: TRAMADOL HYDROCHLORIDE
     Indication: Product used for unknown indication
     Dosage: 30 MILLILITER
     Route: 061
     Dates: start: 20251121, end: 20251121

REACTIONS (5)
  - Respiratory failure [Not Recovered/Not Resolved]
  - Somnolence [Not Recovered/Not Resolved]
  - Sopor [Not Recovered/Not Resolved]
  - Intentional overdose [Not Recovered/Not Resolved]
  - Drug abuse [Not Recovered/Not Resolved]

NARRATIVE: CASE EVENT DATE: 20251121
